FAERS Safety Report 12522163 (Version 4)
Quarter: 2017Q1

REPORT INFORMATION
  Report Type: Report from Study
  Country: TW (occurrence: TW)
  Receive Date: 20160701
  Receipt Date: 20170329
  Transmission Date: 20170428
  Serious: Yes (Death, Other)
  Sender: FDA-Public Use
  Company Number: TW-JNJFOC-20160622100

PATIENT
  Age: 74 Year
  Sex: Male
  Weight: 66.2 kg

DRUGS (3)
  1. METHOTREXATE. [Concomitant]
     Active Substance: METHOTREXATE
     Indication: PSORIASIS
     Dosage: DOSE: 4 UNSPECIFIED UNITS
     Route: 048
     Dates: start: 20130122, end: 20130922
  2. STELARA [Suspect]
     Active Substance: USTEKINUMAB
     Indication: PRODUCT USED FOR UNKNOWN INDICATION
     Route: 058
     Dates: start: 20150514
  3. METHOTREXATE. [Concomitant]
     Active Substance: METHOTREXATE
     Indication: PSORIASIS
     Route: 048
     Dates: start: 20141204

REACTIONS (4)
  - Renal cyst [Unknown]
  - Hepatic steatosis [Unknown]
  - Constipation [Unknown]
  - Pancreatic neoplasm [Fatal]

NARRATIVE: CASE EVENT DATE: 20160530
